FAERS Safety Report 4545727-6 (Version None)
Quarter: 2005Q1

REPORT INFORMATION
  Report Type: 
  Country: None (occurrence: None)
  Receive Date: 20050103
  Receipt Date: 20050103
  Transmission Date: 20050727
  Serious: Yes (Life-Threatening, Hospitalization, Disabling, Other)
  Sender: FDA-Public Use
  Company Number: None

PATIENT
  Age: 51 Year
  Sex: Male
  Weight: 111.1313 kg

DRUGS (3)
  1. ALEVE [Suspect]
     Indication: JOINT SWELLING
     Dosage: 2 PILLS   TWICE A DAY   ORAL
     Route: 048
     Dates: start: 19930110, end: 19971001
  2. ALEVE [Suspect]
     Indication: PAIN
     Dosage: 2 PILLS   TWICE A DAY   ORAL
     Route: 048
     Dates: start: 19930110, end: 19971001
  3. ALEVE [Suspect]
     Indication: SWELLING
     Dosage: 2 PILLS   TWICE A DAY   ORAL
     Route: 048
     Dates: start: 19930110, end: 19971001

REACTIONS (2)
  - ARRHYTHMIA [None]
  - MYOCARDIAL INFARCTION [None]
